FAERS Safety Report 5757692-4 (Version None)
Quarter: 2008Q2

REPORT INFORMATION
  Report Type: 
  Country: None (occurrence: None)
  Receive Date: 20080603
  Receipt Date: 20080522
  Transmission Date: 20081010
  Serious: Yes (Other)
  Sender: FDA-Public Use
  Company Number: IT-PFIZER INC-2008044948

PATIENT
  Sex: Female

DRUGS (3)
  1. CHANTIX [Suspect]
     Indication: SMOKING CESSATION THERAPY
     Dosage: TEXT:1 UNIT DOSE DAILY  TDD:1 UNIT DOSE
     Route: 048
     Dates: start: 20080505, end: 20080512
  2. CARDURA [Concomitant]
  3. ATENOL [Concomitant]

REACTIONS (1)
  - DERMATITIS BULLOUS [None]
